FAERS Safety Report 22167783 (Version 1)
Quarter: 2023Q2

REPORT INFORMATION
  Report Type: Spontaneous
  Country: FR (occurrence: FR)
  Receive Date: 20230403
  Receipt Date: 20230403
  Transmission Date: 20230722
  Serious: Yes (Hospitalization)
  Sender: FDA-Public Use
  Company Number: None

PATIENT
  Age: 81 Year
  Sex: Male
  Weight: 59.1 kg

DRUGS (10)
  1. ALFUZOSIN HYDROCHLORIDE [Interacting]
     Active Substance: ALFUZOSIN HYDROCHLORIDE
     Indication: Product used for unknown indication
     Dosage: UNIT DOSE: 10MG, FREQUENCY TIME: 1 DAYS
     Route: 065
  2. AMIODARONE [Interacting]
     Active Substance: AMIODARONE
     Indication: Tachyarrhythmia
     Dosage: 5 DAYS A WEEK, UNIT DOSE: 200MG, FREQUENCY TIME: 1 DAYS, DURATION: 21 DAYS
     Route: 065
     Dates: start: 20221128, end: 20221219
  3. BISOPROLOL FUMARATE [Interacting]
     Active Substance: BISOPROLOL FUMARATE
     Indication: Myocardial ischaemia
     Dosage: UNIT DOSE: 2.5 MG, THERAPY START DATE: NASK, FREQUENCY TIME: 1 DAYS
     Route: 065
     Dates: end: 20221219
  4. PAXLOVID [Interacting]
     Active Substance: NIRMATRELVIR\RITONAVIR
     Indication: COVID-19
     Dosage: 4 DOSAGE FORMS DAILY; 2 TABLETS X2/DAY, UNIT DOSE: 4DF, FREQUENCY TIME: 1 DAYS, DURATION: 2 DAYS
     Route: 065
     Dates: start: 20221217, end: 20221219
  5. EPLERENONE [Concomitant]
     Active Substance: EPLERENONE
     Indication: Product used for unknown indication
  6. ACETAMINOPHEN [Concomitant]
     Active Substance: ACETAMINOPHEN
     Indication: Product used for unknown indication
  7. PERINDOPRIL [Concomitant]
     Active Substance: PERINDOPRIL
     Indication: Product used for unknown indication
  8. LANSOPRAZOLE [Concomitant]
     Active Substance: LANSOPRAZOLE
     Indication: Product used for unknown indication
  9. KARDEGIC [Concomitant]
     Active Substance: ASPIRIN DL-LYSINE
     Indication: Product used for unknown indication
  10. ATORVASTATIN [Concomitant]
     Active Substance: ATORVASTATIN
     Indication: Product used for unknown indication

REACTIONS (6)
  - Atrioventricular block second degree [Recovered/Resolved]
  - Drug interaction [Recovered/Resolved]
  - Bradycardia [Recovered/Resolved]
  - Syncope [Recovered/Resolved]
  - Hypotension [Recovered/Resolved]
  - Contraindicated product administered [Recovered/Resolved]

NARRATIVE: CASE EVENT DATE: 20221217
